FAERS Safety Report 7127210-7 (Version None)
Quarter: 2010Q4

REPORT INFORMATION
  Report Type: 
  Country: None (occurrence: None)
  Receive Date: 20101129
  Receipt Date: 20100324
  Transmission Date: 20110411
  Serious: No
  Sender: FDA-Public Use
  Company Number: US-PFIZER INC-2010038011

PATIENT
  Sex: Male
  Weight: 86.168 kg

DRUGS (9)
  1. VIAGRA [Suspect]
     Indication: PROSTATIC DISORDER
     Dosage: 25 MG, DAILY
     Route: 048
  2. AVAPRO [Concomitant]
     Indication: HYPERTENSION
     Dosage: 300 MG, DAILY
     Route: 048
  3. LIPITOR [Concomitant]
     Indication: BLOOD CHOLESTEROL INCREASED
     Dosage: 10 MG, DAILY
     Route: 048
  4. PREVACID [Concomitant]
     Indication: DYSPEPSIA
     Dosage: 30 MG, AS NEEDED 2-3 TIMES A WEEK
     Route: 048
  5. POMEGRANATE [Concomitant]
     Dosage: 450 MG, DAILY
     Route: 048
  6. CRANBERRY [Concomitant]
     Dosage: 300 MG, DAILY
     Route: 048
  7. VITAMIN D [Concomitant]
     Dosage: 2000 IU, DAILY
     Route: 048
  8. CENTRUM [Concomitant]
     Indication: VITAMIN SUPPLEMENTATION
     Dosage: 3-4 TIMES A WEEK
     Route: 048
  9. ACETYLSALICYLIC ACID [Concomitant]
     Dosage: 81 MG, UNK
     Route: 048

REACTIONS (2)
  - ABDOMINAL DISTENSION [None]
  - DIARRHOEA [None]
